FAERS Safety Report 26190680 (Version 1)
Quarter: 2025Q4

REPORT INFORMATION
  Report Type: Report from Study
  Country: EU (occurrence: EU)
  Receive Date: 20251223
  Receipt Date: 20251223
  Transmission Date: 20260117
  Serious: Yes (Hospitalization, Other)
  Sender: RANBAXY
  Company Number: EU-SUN PHARMACEUTICAL INDUSTRIES LTD-2025R1-498200

PATIENT
  Age: 35 Year
  Sex: Male

DRUGS (6)
  1. GABAPENTIN [Suspect]
     Active Substance: GABAPENTIN
     Indication: Drug use disorder
     Dosage: 3000 MILLIGRAM, DAILY
     Route: 065
  2. DIAZEPAM [Suspect]
     Active Substance: DIAZEPAM
     Indication: Toxicity to various agents
     Dosage: 30 MILLIGRAM, QD
     Route: 065
  3. PREGABALIN [Suspect]
     Active Substance: PREGABALIN
     Indication: Drug abuse
     Dosage: 1200 MILLIGRAM, QD
     Route: 065
  4. PREGABALIN [Suspect]
     Active Substance: PREGABALIN
     Dosage: 600 MILLIGRAM, QD
     Route: 065
  5. TRAMADOL [Suspect]
     Active Substance: TRAMADOL
     Indication: Product used for unknown indication
     Dosage: UNK
     Route: 065
  6. PALIPERIDONE [Concomitant]
     Active Substance: PALIPERIDONE
     Indication: Schizophrenia
     Dosage: 150 MILLIGRAM, MONTHLY
     Route: 065

REACTIONS (9)
  - Drug withdrawal syndrome [Unknown]
  - Drug use disorder [Not Recovered/Not Resolved]
  - Drug dependence [Unknown]
  - Hallucination [Unknown]
  - Confusional state [Unknown]
  - Drug ineffective [Unknown]
  - Intentional product misuse [Unknown]
  - Drug ineffective for unapproved indication [Unknown]
  - Intentional overdose [Unknown]
